FAERS Safety Report 6009357-1 (Version None)
Quarter: 2008Q4

REPORT INFORMATION
  Report Type: 
  Country: None (occurrence: None)
  Receive Date: 20081217
  Receipt Date: 20081015
  Transmission Date: 20090506
  Serious: Yes (Hospitalization, Other)
  Sender: FDA-Public Use
  Company Number: US-BAYER-200830645NA

PATIENT
  Age: 31 Year
  Sex: Female
  Weight: 145 kg

DRUGS (1)
  1. YAZ [Suspect]
     Indication: POLYCYSTIC OVARIES
     Route: 048
     Dates: start: 20080330, end: 20080411

REACTIONS (9)
  - DYSARTHRIA [None]
  - FACIAL PALSY [None]
  - HEADACHE [None]
  - HYPOAESTHESIA ORAL [None]
  - INSOMNIA [None]
  - MIGRAINE [None]
  - MUSCLE SPASMS [None]
  - NAUSEA [None]
  - VISUAL IMPAIRMENT [None]
